FAERS Safety Report 12603696 (Version 1)
Quarter: 2016Q3

REPORT INFORMATION
  Report Type: Spontaneous
  Country: US (occurrence: US)
  Receive Date: 20160728
  Receipt Date: 20160728
  Transmission Date: 20161109
  Serious: Yes (Hospitalization, Other)
  Sender: FDA-Public Use
  Company Number: US-JNJFOC-20160715908

PATIENT
  Sex: Male

DRUGS (1)
  1. SPORANOX [Suspect]
     Active Substance: ITRACONAZOLE
     Indication: PROPHYLAXIS AGAINST TRANSPLANT REJECTION
     Route: 048
     Dates: start: 2016

REACTIONS (4)
  - Fatigue [Unknown]
  - Disability [Not Recovered/Not Resolved]
  - Thrombosis [Unknown]
  - Oxygen supplementation [Not Recovered/Not Resolved]

NARRATIVE: CASE EVENT DATE: 2016
